FAERS Safety Report 24083420 (Version 1)
Quarter: 2024Q3

REPORT INFORMATION
  Report Type: Spontaneous
  Country: IN (occurrence: IN)
  Receive Date: 20240712
  Receipt Date: 20240712
  Transmission Date: 20241016
  Serious: Yes (Death, Other)
  Sender: PANACEA BIOTEC
  Company Number: IN-PBT-009512

PATIENT
  Age: 12 Year
  Sex: Male

DRUGS (18)
  1. TACROLIMUS [Suspect]
     Active Substance: TACROLIMUS
     Indication: Prophylaxis against graft versus host disease
     Route: 065
     Dates: start: 2024
  2. BORTEZOMIB [Suspect]
     Active Substance: BORTEZOMIB
     Indication: B-cell type acute leukaemia
     Dosage: DAYS 1, 4, 8, AND 11
     Route: 065
     Dates: start: 2023
  3. MYCOPHENOLATE MOFETIL [Suspect]
     Active Substance: MYCOPHENOLATE MOFETIL
     Indication: Prophylaxis against graft versus host disease
     Route: 065
     Dates: start: 2024
  4. CYCLOPHOSPHAMIDE [Suspect]
     Active Substance: CYCLOPHOSPHAMIDE
     Indication: Prophylaxis against graft versus host disease
     Route: 065
     Dates: start: 2024
  5. INOTUZUMAB OZOGAMICIN [Concomitant]
     Active Substance: INOTUZUMAB OZOGAMICIN
     Indication: B-cell type acute leukaemia
     Dosage: ON DAY 1
     Route: 065
     Dates: start: 2023
  6. VENETOCLAX [Concomitant]
     Active Substance: VENETOCLAX
     Indication: B-cell type acute leukaemia
     Dosage: DAYS 1-7
     Route: 065
     Dates: start: 2023
  7. POSACONAZOLE [Concomitant]
     Active Substance: POSACONAZOLE
     Indication: B-cell type acute leukaemia
     Dosage: DAYS 1-7
     Route: 065
     Dates: start: 2023
  8. RITUXIMAB [Concomitant]
     Active Substance: RITUXIMAB
     Indication: B-cell type acute leukaemia
     Route: 065
     Dates: start: 2023
  9. DEXAMETHASONE [Concomitant]
     Active Substance: DEXAMETHASONE
     Indication: B-cell type acute leukaemia
     Route: 065
     Dates: start: 2023
  10. FLUDARABINE [Concomitant]
     Active Substance: FLUDARABINE PHOSPHATE
     Indication: Bone marrow conditioning regimen
     Route: 065
     Dates: start: 202401
  11. TREOSULFAN [Concomitant]
     Active Substance: TREOSULFAN
     Indication: Bone marrow conditioning regimen
     Dosage: 14 GM/M2
     Route: 065
     Dates: start: 202401
  12. INOTUZUMAB OZOGAMICIN [Concomitant]
     Active Substance: INOTUZUMAB OZOGAMICIN
     Indication: B-cell type acute leukaemia
     Dosage: ON DAYS  8 AND 15
     Route: 065
     Dates: start: 2023
  13. BORTEZOMIB [Suspect]
     Active Substance: BORTEZOMIB
     Indication: B-cell type acute leukaemia
     Dosage: RECEIVED THREE WEEKS OF SIMILAR THERAPY
     Route: 065
  14. INOTUZUMAB OZOGAMICIN [Concomitant]
     Active Substance: INOTUZUMAB OZOGAMICIN
     Indication: B-cell type acute leukaemia
     Dosage: RECEIVED THREE WEEKS OF SIMILAR THERAPY
     Route: 065
  15. VENETOCLAX [Concomitant]
     Active Substance: VENETOCLAX
     Indication: B-cell type acute leukaemia
     Dosage: RECEIVED THREE WEEKS OF SIMILAR THERAPY
     Route: 065
  16. POSACONAZOLE [Concomitant]
     Active Substance: POSACONAZOLE
     Indication: B-cell type acute leukaemia
     Dosage: RECEIVED THREE WEEKS OF SIMILAR THERAPY
     Route: 065
  17. RITUXIMAB [Concomitant]
     Active Substance: RITUXIMAB
     Indication: B-cell type acute leukaemia
     Dosage: RECEIVED THREE WEEKS OF SIMILAR THERAPY
     Route: 065
     Dates: start: 2023
  18. DEXAMETHASONE [Concomitant]
     Active Substance: DEXAMETHASONE
     Indication: B-cell type acute leukaemia
     Dosage: RECEIVED THREE WEEKS OF SIMILAR THERAPY
     Route: 065

REACTIONS (4)
  - Cytomegalovirus infection reactivation [Unknown]
  - Graft versus host disease in skin [Fatal]
  - Graft versus host disease in gastrointestinal tract [Fatal]
  - Product use in unapproved indication [Unknown]

NARRATIVE: CASE EVENT DATE: 20240101
